FAERS Safety Report 5739281-0 (Version None)
Quarter: 2008Q2

REPORT INFORMATION
  Report Type: 
  Country: None (occurrence: None)
  Receive Date: 20080515
  Receipt Date: 20080512
  Transmission Date: 20081010
  Serious: Yes (Hospitalization)
  Sender: FDA-Public Use
  Company Number: AU-BRISTOL-MYERS SQUIBB COMPANY-14010292

PATIENT
  Age: 42 Year
  Sex: Female

DRUGS (2)
  1. ABATACEPT [Suspect]
     Indication: SYSTEMIC LUPUS ERYTHEMATOSUS
     Route: 042
     Dates: start: 20060316, end: 20071116
  2. ASPIRIN [Concomitant]
     Dates: start: 20010205

REACTIONS (1)
  - NEUTROPENIA [None]
